FAERS Safety Report 11336411 (Version 2)
Quarter: 2015Q3

REPORT INFORMATION
  Report Type: Spontaneous
  Country: JP (occurrence: JP)
  Receive Date: 20150804
  Receipt Date: 20150804
  Transmission Date: 20151125
  Serious: Yes (Hospitalization)
  Sender: FDA-Public Use
  Company Number: JP-HOSPIRA-04H-087-0278073-00

PATIENT
  Age: 73 Year
  Sex: Male

DRUGS (6)
  1. TALWIN [Suspect]
     Active Substance: PENTAZOCINE LACTATE
     Indication: HIGH FREQUENCY ABLATION
     Dosage: UNKNOWN
     Route: 042
     Dates: start: 20040904, end: 20040904
  2. LEVOVIST [Concomitant]
     Active Substance: GALACTOSE
     Indication: HIGH FREQUENCY ABLATION
     Dosage: 3 VIALS
     Route: 041
     Dates: start: 20040904, end: 20040904
  3. URSODEOXYCHOLIC ACID [Suspect]
     Active Substance: URSODIOL
     Indication: PRODUCT USED FOR UNKNOWN INDICATION
     Route: 048
     Dates: start: 20040720, end: 20040910
  4. GLYCYRRHIZIC ACID, AMMONIUM SALT [Concomitant]
     Indication: HEPATIC CIRRHOSIS
     Route: 042
     Dates: start: 20040906, end: 20040915
  5. TALWIN [Suspect]
     Active Substance: PENTAZOCINE LACTATE
     Indication: HEPATIC CIRRHOSIS
     Dosage: UNKNOWN
     Route: 042
     Dates: start: 20040904, end: 20040904
  6. GLYCYRON                           /00466401/ [Concomitant]
     Indication: HEPATIC CIRRHOSIS
     Route: 048
     Dates: start: 20040720, end: 20040910

REACTIONS (1)
  - Erythema [Recovered/Resolved]

NARRATIVE: CASE EVENT DATE: 20040908
